FAERS Safety Report 9086002 (Version 1)
Quarter: 2013Q1

REPORT INFORMATION
  Report Type: Spontaneous
  Country: GB (occurrence: GB)
  Receive Date: 20130218
  Receipt Date: 20130218
  Transmission Date: 20140127
  Serious: Yes (Hospitalization)
  Sender: FDA-Public Use
  Company Number: GB-ACCORD-016360

PATIENT
  Age: 62 Year
  Sex: Female

DRUGS (4)
  1. DOCETAXEL [Suspect]
     Indication: BREAST CANCER
     Route: 042
     Dates: start: 20120504
  2. FILGRASTIM [Concomitant]
     Dates: start: 20120505, end: 20120509
  3. LANSOPRAZOLE [Concomitant]
     Dates: start: 20120315
  4. TRASTUZUMAB [Concomitant]
     Indication: BREAST CANCER
     Dosage: FREQUENCY- ONCE IN 23 WEEK
     Route: 042
     Dates: start: 20120503

REACTIONS (2)
  - Oral candidiasis [Not Recovered/Not Resolved]
  - Dehydration [Unknown]
